FAERS Safety Report 8455961-0 (Version None)
Quarter: 2012Q2

REPORT INFORMATION
  Report Type: 
  Country: None (occurrence: None)
  Receive Date: 20120621
  Receipt Date: 20120611
  Transmission Date: 20120825
  Serious: Yes (Hospitalization)
  Sender: FDA-Public Use
  Company Number: US-BAYER-2012-006471

PATIENT
  Age: 28 Year
  Sex: Female
  Weight: 78.005 kg

DRUGS (8)
  1. PHENTERMINE [Concomitant]
     Dosage: UNK
     Dates: start: 20090401, end: 20091101
  2. ANTIBIOTICS [Concomitant]
  3. YAZ [Suspect]
     Indication: PREMENSTRUAL SYNDROME
     Dosage: UNK
     Dates: start: 20080915, end: 20090501
  4. ALBUTEROL [Concomitant]
  5. PROAIR HFA [Concomitant]
     Dosage: UNK
     Dates: start: 20091001, end: 20091201
  6. FLOVENT [Concomitant]
     Dosage: UNK
     Dates: start: 20091001, end: 20091201
  7. IBUPROFEN [Concomitant]
  8. PERCOCET [Concomitant]

REACTIONS (2)
  - CHOLECYSTITIS ACUTE [None]
  - GALLBLADDER DISORDER [None]
